FAERS Safety Report 6919219-0 (Version None)
Quarter: 2010Q3

REPORT INFORMATION
  Report Type: 
  Country: None (occurrence: None)
  Receive Date: 20100811
  Receipt Date: 20100728
  Transmission Date: 20110219
  Serious: Yes (Other)
  Sender: FDA-Public Use
  Company Number: JP-ROCHE-719446

PATIENT
  Age: 77 Year
  Sex: Male

DRUGS (7)
  1. AVASTIN [Suspect]
     Indication: COLORECTAL CANCER METASTATIC
     Route: 041
  2. ELPLAT [Suspect]
     Indication: COLORECTAL CANCER METASTATIC
     Route: 041
  3. ELPLAT [Suspect]
     Route: 041
  4. ELPLAT [Suspect]
     Route: 041
  5. LEUCOVORIN CALCIUM [Concomitant]
     Route: 041
  6. FLUOROURACIL [Concomitant]
     Route: 040
  7. FLUOROURACIL [Concomitant]
     Route: 041

REACTIONS (5)
  - HAEMOGLOBIN ABNORMAL [None]
  - LEUKOPENIA [None]
  - NEUTROPENIA [None]
  - RENAL IMPAIRMENT [None]
  - THROMBOCYTOPENIA [None]
